FAERS Safety Report 4622115-5 (Version None)
Quarter: 2005Q1

REPORT INFORMATION
  Report Type: 
  Country: None (occurrence: None)
  Receive Date: 20050329
  Receipt Date: 20050315
  Transmission Date: 20050727
  Serious: Yes (Disabling)
  Sender: FDA-Public Use
  Company Number: A013463

PATIENT
  Age: 42 Year
  Sex: Male

DRUGS (3)
  1. VIAGRA [Suspect]
     Indication: ERECTILE DYSFUNCTION
     Dosage: 50 MG ( AS NECESSARY), ORAL
     Route: 048
     Dates: start: 19990113
  2. SERTRALINE (SERTRALINE) [Concomitant]
  3. IBUPROFEN [Concomitant]

REACTIONS (8)
  - BLINDNESS UNILATERAL [None]
  - EYE PAIN [None]
  - HEADACHE [None]
  - OPTIC DISC HAEMORRHAGE [None]
  - OPTIC ISCHAEMIC NEUROPATHY [None]
  - PUPILLARY DISORDER [None]
  - THERAPY NON-RESPONDER [None]
  - VISUAL FIELD DEFECT [None]
